FAERS Safety Report 15462589 (Version 2)
Quarter: 2018Q4

REPORT INFORMATION
  Report Type: Spontaneous
  Country: US (occurrence: US)
  Receive Date: 20181004
  Receipt Date: 20181029
  Transmission Date: 20190204
  Serious: Yes (Disabling, Other)
  Sender: FDA-Public Use
  Company Number: US-LUPIN PHARMACEUTICALS INC.-2018-06846

PATIENT
  Sex: Female
  Weight: 84 kg

DRUGS (2)
  1. LOSARTAN POTASSIUM TABLET USP 50 MG [Suspect]
     Active Substance: LOSARTAN POTASSIUM
     Indication: CARDIAC DISORDER
     Dosage: 50 MG, QD
     Route: 048
  2. LOSARTAN POTASSIUM TABLET USP 50 MG [Suspect]
     Active Substance: LOSARTAN POTASSIUM
     Dosage: 50 MG, QD
     Route: 048

REACTIONS (3)
  - Gait inability [Not Recovered/Not Resolved]
  - Nerve degeneration [Not Recovered/Not Resolved]
  - B-cell lymphoma [Not Recovered/Not Resolved]

NARRATIVE: CASE EVENT DATE: 2015
